FAERS Safety Report 5536000-8 (Version None)
Quarter: 2007Q4

REPORT INFORMATION
  Report Type: 
  Country: None (occurrence: None)
  Receive Date: 20071120
  Receipt Date: 20070918
  Transmission Date: 20080405
  Serious: No
  Sender: FDA-Public Use
  Company Number: WAES 0709USA02657

PATIENT
  Sex: Female

DRUGS (2)
  1. JANUVIA [Suspect]
     Indication: DIABETES MELLITUS
     Dosage: PO
     Route: 048
     Dates: start: 20070101
  2. GLYBURIDE [Suspect]

REACTIONS (5)
  - DRUG INEFFECTIVE [None]
  - DRUG INTERACTION [None]
  - PRURITUS [None]
  - SKIN BURNING SENSATION [None]
  - SKIN NODULE [None]
